FAERS Safety Report 16364944 (Version 2)
Quarter: 2019Q4

REPORT INFORMATION
  Report Type: Report from Study
  Country: None (occurrence: BR)
  Receive Date: 20190529
  Receipt Date: 20191202
  Transmission Date: 20200122
  Serious: Yes (Hospitalization, Other)
  Sender: FDA-Public Use
  Company Number: BR-ABBVIE-19K-020-2663978-00

PATIENT
  Age: 53 Year
  Sex: Female
  Weight: 81 kg

DRUGS (1)
  1. HUMIRA [Suspect]
     Active Substance: ADALIMUMAB
     Indication: RHEUMATOID ARTHRITIS
     Route: 058
     Dates: start: 20181008, end: 20190428

REACTIONS (20)
  - Injection site cellulitis [Recovered/Resolved]
  - Injection site discolouration [Not Recovered/Not Resolved]
  - Adverse drug reaction [Unknown]
  - Candida infection [Recovered/Resolved]
  - Injection site warmth [Unknown]
  - Tendon disorder [Unknown]
  - Osteitis [Recovered/Resolved]
  - Injection site erythema [Unknown]
  - Spinal pain [Recovered/Resolved]
  - Blister [Unknown]
  - Skin infection [Unknown]
  - Complication associated with device [Unknown]
  - Pain [Not Recovered/Not Resolved]
  - Bursitis [Unknown]
  - Injection site pain [Unknown]
  - Tendonitis [Recovered/Resolved]
  - Urinary tract infection [Recovered/Resolved]
  - Injection site warmth [Unknown]
  - Injection site oedema [Recovered/Resolved]
  - Spinal pain [Unknown]

NARRATIVE: CASE EVENT DATE: 201810
